FAERS Safety Report 19513965 (Version 1)
Quarter: 2021Q3

REPORT INFORMATION
  Report Type: Spontaneous
  Country: US (occurrence: US)
  Receive Date: 20210709
  Receipt Date: 20210709
  Transmission Date: 20211014
  Serious: No
  Sender: FDA-Public Use
  Company Number: US-AVEO ONCOLOGY-2021-AVEO-US003359

PATIENT

DRUGS (12)
  1. VITAMIN D3 [Concomitant]
     Active Substance: CHOLECALCIFEROL
  2. MULTIVITAMIN [Concomitant]
     Active Substance: VITAMINS
  3. DILTIAZEM ER [Concomitant]
     Active Substance: DILTIAZEM
     Dosage: 360 MG
  4. TERAZOSIN [Concomitant]
     Active Substance: TERAZOSIN HYDROCHLORIDE
     Dosage: 10 MG
  5. LEVOTHYROXINE. [Concomitant]
     Active Substance: LEVOTHYROXINE
     Dosage: 25 UG
  6. CARVEDILOL. [Concomitant]
     Active Substance: CARVEDILOL
     Dosage: 12.5 MG
  7. ELIQUIS [Concomitant]
     Active Substance: APIXABAN
     Dosage: 5 MG
  8. CALCIUM CITRATE [Concomitant]
     Active Substance: CALCIUM CITRATE
  9. FOTIVDA [Suspect]
     Active Substance: TIVOZANIB HYDROCHLORIDE
     Indication: RENAL CELL CARCINOMA
     Dosage: 1.34 MG, DAILY
  10. MIRALAX [Concomitant]
     Active Substance: POLYETHYLENE GLYCOL 3350
  11. ISOSORBIDE. [Concomitant]
     Active Substance: ISOSORBIDE
     Dosage: 60 MG
  12. GUANFACINE. [Concomitant]
     Active Substance: GUANFACINE
     Dosage: 1 MG

REACTIONS (1)
  - Therapy interrupted [Unknown]

NARRATIVE: CASE EVENT DATE: 202105
